FAERS Safety Report 5114809-2 (Version None)
Quarter: 2006Q3

REPORT INFORMATION
  Report Type: 
  Country: None (occurrence: None)
  Receive Date: 20060921
  Receipt Date: 20060908
  Transmission Date: 20061208
  Serious: Yes (Life-Threatening, Hospitalization, Other)
  Sender: FDA-Public Use
  Company Number: 2006AL002714

PATIENT
  Age: 72 Year
  Sex: Female

DRUGS (5)
  1. METOCLOPRAMIDE [Suspect]
     Dosage: 10 MG; TID; PO
     Route: 048
  2. DICLOFENAC [Concomitant]
  3. ALENDRONIC ACID [Concomitant]
  4. CO-DYDRAMOL [Concomitant]
  5. FYBOGEL [Concomitant]

REACTIONS (2)
  - DIALYSIS [None]
  - NEPHRITIS INTERSTITIAL [None]
